FAERS Safety Report 9392466 (Version 1)
Quarter: 2013Q3

REPORT INFORMATION
  Report Type: Spontaneous
  Country: US (occurrence: None)
  Receive Date: 20130708
  Receipt Date: 20130708
  Transmission Date: 20140515
  Serious: Yes (Other)
  Sender: FDA-Public Use
  Company Number: None

PATIENT
  Age: 54 Year
  Sex: Female

DRUGS (1)
  1. CEPHALEXIN [Suspect]
     Indication: IMPETIGO
     Dosage: 1CAPSULE
     Route: 048
     Dates: start: 20130613, end: 20130614

REACTIONS (5)
  - Blister [None]
  - Urticaria [None]
  - Pain in extremity [None]
  - Skin exfoliation [None]
  - Local swelling [None]
